FAERS Safety Report 6203974-1 (Version None)
Quarter: 2009Q2

REPORT INFORMATION
  Report Type: 
  Country: None (occurrence: None)
  Receive Date: 20090527
  Receipt Date: 20090518
  Transmission Date: 20091009
  Serious: Yes (Disabling)
  Sender: FDA-Public Use
  Company Number: B0574596A

PATIENT
  Age: 31 Year
  Sex: Female
  Weight: 100 kg

DRUGS (6)
  1. AMOXICILLIN [Suspect]
     Route: 048
     Dates: start: 20090501
  2. PREDNISOLONE [Suspect]
     Route: 048
     Dates: start: 20090501
  3. BECLOMETHASONE DIPROPIONATE [Concomitant]
     Route: 055
  4. ALBUTEROL [Concomitant]
     Route: 055
  5. MIGRALEVE [Concomitant]
  6. OMEPRAZOLE [Concomitant]

REACTIONS (2)
  - DEAFNESS [None]
  - TINNITUS [None]
